FAERS Safety Report 14503217 (Version 5)
Quarter: 2018Q4

REPORT INFORMATION
  Report Type: Spontaneous
  Country: US (occurrence: US)
  Receive Date: 20180208
  Receipt Date: 20181121
  Transmission Date: 20190204
  Serious: Yes (Other)
  Sender: FDA-Public Use
  Company Number: US-PFIZER INC-2018054340

PATIENT
  Age: 60 Year
  Sex: Male
  Weight: 60 kg

DRUGS (2)
  1. IBUPROFEN. [Suspect]
     Active Substance: IBUPROFEN
     Indication: ARTHRITIS
     Dosage: UNK
  2. IBUPROFEN. [Suspect]
     Active Substance: IBUPROFEN
     Dosage: UNK
     Dates: start: 201801

REACTIONS (8)
  - Hepatitis [Recovered/Resolved]
  - Blood creatinine increased [Unknown]
  - Enzyme level increased [Recovered/Resolved]
  - Expired product administered [Unknown]
  - Renal disorder [Unknown]
  - Nephritis [Unknown]
  - Feeling abnormal [Unknown]
  - Liver disorder [Unknown]

NARRATIVE: CASE EVENT DATE: 20150216
